FAERS Safety Report 4458214-0 (Version None)
Quarter: 2004Q3

REPORT INFORMATION
  Report Type: 
  Country: None (occurrence: None)
  Receive Date: 20040917
  Receipt Date: 20040319
  Transmission Date: 20050211
  Serious: Yes (Hospitalization)
  Sender: FDA-Public Use
  Company Number: US-JNJFOC-20040304692

PATIENT
  Sex: Male

DRUGS (1)
  1. TOPAMAX [Suspect]

REACTIONS (2)
  - EYE DISORDER [None]
  - VISUAL DISTURBANCE [None]
